FAERS Safety Report 12063491 (Version 1)
Quarter: 2016Q1

REPORT INFORMATION
  Report Type: Report from Study
  Country: US (occurrence: US)
  Receive Date: 20160210
  Receipt Date: 20160210
  Transmission Date: 20160526
  Serious: No
  Sender: FDA-Public Use
  Company Number: US-ABBVIE-15P-163-1519252-00

PATIENT
  Age: 60 Year
  Sex: Female

DRUGS (6)
  1. HUMIRA [Suspect]
     Active Substance: ADALIMUMAB
     Indication: RHEUMATOID ARTHRITIS
     Route: 058
     Dates: start: 20151203
  2. HYDROCHLOROTHIAZIDE. [Concomitant]
     Active Substance: HYDROCHLOROTHIAZIDE
     Indication: PRODUCT USED FOR UNKNOWN INDICATION
  3. LASIX [Concomitant]
     Active Substance: FUROSEMIDE
     Indication: PRODUCT USED FOR UNKNOWN INDICATION
  4. LIPITOR [Concomitant]
     Active Substance: ATORVASTATIN CALCIUM
     Indication: PRODUCT USED FOR UNKNOWN INDICATION
  5. METOPROLOL. [Concomitant]
     Active Substance: METOPROLOL
     Indication: PRODUCT USED FOR UNKNOWN INDICATION
  6. THYMUS [Concomitant]
     Active Substance: HUMAN THYMUS\THYMUS
     Indication: PRODUCT USED FOR UNKNOWN INDICATION

REACTIONS (10)
  - Rhinorrhoea [Unknown]
  - Drug ineffective [Unknown]
  - Sinus disorder [Unknown]
  - Vision blurred [Unknown]
  - Cough [Unknown]
  - Depressed mood [Unknown]
  - Eye swelling [Unknown]
  - Arthralgia [Unknown]
  - Pain in extremity [Unknown]
  - Swelling face [Unknown]

NARRATIVE: CASE EVENT DATE: 2015
